FAERS Safety Report 13064757 (Version 3)
Quarter: 2017Q1

REPORT INFORMATION
  Report Type: Report from Study
  Country: US (occurrence: US)
  Receive Date: 20161227
  Receipt Date: 20170124
  Transmission Date: 20170428
  Serious: Yes (Other)
  Sender: FDA-Public Use
  Company Number: US-PFIZER INC-2016526190

PATIENT
  Age: 55 Year
  Sex: Female

DRUGS (3)
  1. IBRANCE [Suspect]
     Active Substance: PALBOCICLIB
     Dosage: 100 MG, CYCLIC (DAILY: 1 WEEK ON AND 1 WEEK OFF)
     Route: 048
     Dates: start: 20160829
  2. IBRANCE [Suspect]
     Active Substance: PALBOCICLIB
     Dosage: 100 MG, CYCLIC (DAILY FOR 3 WEEKS ON/ 1WEEK OFF)
     Route: 048
     Dates: start: 20161115
  3. IBRANCE [Suspect]
     Active Substance: PALBOCICLIB
     Indication: BREAST CANCER
     Dosage: 100 MG, CYCLIC (DAILY FOR 3 WEEKS ON/ 1WEEK OFF)
     Route: 048
     Dates: start: 20160829, end: 20161109

REACTIONS (6)
  - Bone marrow failure [Unknown]
  - Nasopharyngitis [Unknown]
  - Neutropenia [Unknown]
  - Thrombocytopenia [Unknown]
  - Cough [Unknown]
  - Madarosis [Unknown]
